FAERS Safety Report 9471347 (Version 2)
Quarter: 2013Q3

REPORT INFORMATION
  Report Type: Spontaneous
  Country: DE (occurrence: None)
  Receive Date: 20130815
  Receipt Date: 20130916
  Transmission Date: 20140515
  Serious: Yes (Other)
  Sender: FDA-Public Use
  Company Number: 1308-1010

PATIENT
  Age: 87 Year
  Sex: Female
  Weight: 40 kg

DRUGS (11)
  1. EYELEA [Suspect]
     Indication: AGE-RELATED MACULAR DEGENERATION
     Dosage: 0.5 MILLIGRAM/MILLILITERS, ONCE, INTRAOCULAR
     Route: 031
     Dates: start: 20130313, end: 20130313
  2. CRAVIT [Concomitant]
     Route: 047
  3. KARY UNI (PIPENOXINE) (EYE DROPS) [Concomitant]
     Route: 047
  4. RINDERON (BETAMETHASONE) (EYE DROPS) [Concomitant]
     Route: 047
  5. PATANOL [Concomitant]
     Route: 047
  6. AMLODIN (AMLODIPINE BESILATE) (TABLET) [Concomitant]
  7. TANATRIL (IMIDAPRIL HYDROCHLORIDE) (TABLET) [Concomitant]
  8. SACCORTN [Suspect]
  9. TAZIN (CARBAZOCHROME SODIUM SULFONATE) [Concomitant]
  10. KALLIDINOGENASE (KALLIDINOGENASE) [Concomitant]
  11. RUEFRIEN (MARZULENE S) (GRANULES) [Concomitant]

REACTIONS (1)
  - Angle closure glaucoma [None]
